FAERS Safety Report 4474360-X (Version None)
Quarter: 2004Q4

REPORT INFORMATION
  Report Type: 
  Country: None (occurrence: None)
  Receive Date: 20041012
  Receipt Date: 20040910
  Transmission Date: 20050328
  Serious: Yes (Hospitalization)
  Sender: FDA-Public Use
  Company Number: 200412813GDS

PATIENT
  Age: 27 Year
  Sex: Male
  Weight: 55 kg

DRUGS (2)
  1. CIPROFLOXACIN [Suspect]
  2. NEORAL VERSUS TACROLIMUS (TACROLIMUS) [Suspect]
     Indication: RENAL TRANSPLANT
     Dosage: ORAL
     Route: 048
     Dates: start: 20040313

REACTIONS (2)
  - CYTOMEGALOVIRUS INFECTION [None]
  - LABORATORY TEST ABNORMAL [None]
